FAERS Safety Report 15461625 (Version 2)
Quarter: 2020Q3

REPORT INFORMATION
  Report Type: Report from Study
  Country: US (occurrence: US)
  Receive Date: 20181003
  Receipt Date: 20200710
  Transmission Date: 20201102
  Serious: Yes (Hospitalization, Other)
  Sender: FDA-Public Use
  Company Number: US-SHIRE-US201837391

PATIENT
  Age: 57 Year
  Sex: Female

DRUGS (2)
  1. HUMAN NORMAL IMMUNOGLOBULIN; LIQUID 20 [Suspect]
     Active Substance: HUMAN IMMUNOGLOBULIN G
     Indication: IMMUNODEFICIENCY COMMON VARIABLE
     Dosage: UNK, UNKNOWN
     Route: 065
  2. TRELEGY ELLIPTA [Concomitant]
     Active Substance: FLUTICASONE FUROATE\UMECLIDINIUM BROMIDE\VILANTEROL TRIFENATATE
     Indication: CHRONIC OBSTRUCTIVE PULMONARY DISEASE

REACTIONS (12)
  - Thrombosis [Unknown]
  - Myeloproliferative neoplasm [Unknown]
  - Recurrent cancer [Unknown]
  - Craniocerebral injury [Unknown]
  - Coma [Unknown]
  - Pancreatitis [Unknown]
  - Pancreatic cyst [Unknown]
  - Vulval cancer [Unknown]
  - Chronic obstructive pulmonary disease [Unknown]
  - Pulmonary function test decreased [Unknown]
  - Papilloma viral infection [Unknown]
  - Splenomegaly [Unknown]

NARRATIVE: CASE EVENT DATE: 201801
